FAERS Safety Report 5437202-1 (Version None)
Quarter: 2007Q3

REPORT INFORMATION
  Report Type: 
  Country: None (occurrence: None)
  Receive Date: 20070831
  Receipt Date: 20070822
  Transmission Date: 20080115
  Serious: No
  Sender: FDA-Public Use
  Company Number: A0673164A

PATIENT

DRUGS (2)
  1. ALLI [Suspect]
     Indication: DRUG USE FOR UNKNOWN INDICATION
     Route: 048
  2. MULTI-VITAMIN [Concomitant]

REACTIONS (2)
  - CONSTIPATION [None]
  - FAECES DISCOLOURED [None]
